FAERS Safety Report 5293766-2 (Version None)
Quarter: 2007Q2

REPORT INFORMATION
  Report Type: 
  Country: None (occurrence: None)
  Receive Date: 20070405
  Receipt Date: 20070326
  Transmission Date: 20071010
  Serious: Yes (Death)
  Sender: FDA-Public Use
  Company Number: 2007P1000163

PATIENT
  Age: 63 Year
  Sex: Male

DRUGS (8)
  1. BUSULFAN (BUSULFAN) [Suspect]
     Indication: STEM CELL TRANSPLANT
     Dosage: IV
     Route: 042
  2. CAMPATH [Suspect]
     Indication: STEM CELL TRANSPLANT
     Dosage: IV
     Route: 042
  3. FLUDARABINE PHOSPHATE [Suspect]
     Indication: CHRONIC MYELOMONOCYTIC LEUKAEMIA
     Dosage: IV
     Route: 042
  4. CYCLOSPORINE [Suspect]
     Indication: GRAFT VERSUS HOST DISEASE
  5. CYTARABINE [Concomitant]
  6. NEUPOGEN [Concomitant]
  7. IDARUBICIN HCL [Concomitant]
  8. TRIMETOPRIM /00158501/ [Concomitant]

REACTIONS (5)
  - CEREBRAL TOXOPLASMOSIS [None]
  - CONVULSION [None]
  - GRAFT VERSUS HOST DISEASE [None]
  - HEMIPARESIS [None]
  - LEUKAEMIA RECURRENT [None]
